FAERS Safety Report 21272376 (Version 1)
Quarter: 2022Q3

REPORT INFORMATION
  Report Type: Spontaneous
  Country: US (occurrence: US)
  Receive Date: 20220830
  Receipt Date: 20220830
  Transmission Date: 20221027
  Serious: No
  Sender: FDA-Public Use
  Company Number: US-ABBVIE-22K-163-4283959-00

PATIENT
  Age: 62 Year
  Sex: Female
  Weight: 50.848 kg

DRUGS (2)
  1. MAVYRET [Suspect]
     Active Substance: GLECAPREVIR\PIBRENTASVIR
     Indication: Chronic hepatitis C
     Route: 048
     Dates: start: 20220214
  2. LOSARTAN [Concomitant]
     Active Substance: LOSARTAN
     Indication: Hypertension

REACTIONS (1)
  - Pruritus [Not Recovered/Not Resolved]

NARRATIVE: CASE EVENT DATE: 20220214
